FAERS Safety Report 7716973-5 (Version None)
Quarter: 2011Q3

REPORT INFORMATION
  Report Type: 
  Country: None (occurrence: None)
  Receive Date: 20110829
  Receipt Date: 20110812
  Transmission Date: 20111222
  Serious: Yes (Hospitalization)
  Sender: FDA-Public Use
  Company Number: GB-VALEANT-2011VX002564

PATIENT
  Age: 8 Month
  Sex: Male

DRUGS (2)
  1. PROPRANOLOL HCL [Suspect]
     Indication: SUPRAVENTRICULAR TACHYCARDIA
     Route: 065
  2. TIMOLOL MALEATE [Suspect]
     Indication: ACCIDENTAL EXPOSURE
     Route: 045

REACTIONS (21)
  - CARDIOTOXICITY [None]
  - HEART RATE DECREASED [None]
  - HYPOTENSION [None]
  - PERIPHERAL COLDNESS [None]
  - PULSE ABNORMAL [None]
  - DEPRESSED LEVEL OF CONSCIOUSNESS [None]
  - LETHARGY [None]
  - OXYGEN SATURATION DECREASED [None]
  - NEUROTOXICITY [None]
  - METABOLIC ACIDOSIS [None]
  - INCORRECT ROUTE OF DRUG ADMINISTRATION [None]
  - DRUG INTERACTION [None]
  - MIOSIS [None]
  - RESPIRATORY RATE DECREASED [None]
  - HYPOTONIA [None]
  - NERVOUS SYSTEM DISORDER [None]
  - MALAISE [None]
  - WRONG DRUG ADMINISTERED [None]
  - DRUG LEVEL INCREASED [None]
  - ACCIDENTAL EXPOSURE [None]
  - CAPILLARY NAIL REFILL TEST ABNORMAL [None]
